FAERS Safety Report 6623039-4 (Version None)
Quarter: 2010Q1

REPORT INFORMATION
  Report Type: 
  Country: None (occurrence: None)
  Receive Date: 20100310
  Receipt Date: 20100106
  Transmission Date: 20100710
  Serious: Yes (Other)
  Sender: FDA-Public Use
  Company Number: US-BIOGENIDEC-2009BI039965

PATIENT
  Age: 33 Year
  Sex: Female

DRUGS (3)
  1. AVONEX [Suspect]
     Indication: MULTIPLE SCLEROSIS
     Route: 030
     Dates: start: 20090301, end: 20090101
  2. AVONEX [Suspect]
     Route: 030
     Dates: start: 20090101, end: 20090101
  3. COPAXONE [Concomitant]
     Indication: MULTIPLE SCLEROSIS
     Dates: start: 20090918, end: 20090920

REACTIONS (1)
  - ABORTION SPONTANEOUS [None]
